FAERS Safety Report 20892602 (Version 1)
Quarter: 2022Q2

REPORT INFORMATION
  Report Type: Spontaneous
  Country: US (occurrence: US)
  Receive Date: 20220531
  Receipt Date: 20220531
  Transmission Date: 20220721
  Serious: Yes (Other)
  Sender: FDA-Public Use
  Company Number: US-BRISTOL-MYERS SQUIBB COMPANY-2022-031592

PATIENT
  Age: 72 Year
  Sex: Female
  Weight: 70 kg

DRUGS (21)
  1. REVLIMID [Suspect]
     Active Substance: LENALIDOMIDE
     Indication: Plasma cell myeloma
     Dosage: FOR 21 DAYS
     Route: 048
     Dates: start: 20220304
  2. REVLIMID [Suspect]
     Active Substance: LENALIDOMIDE
     Route: 048
     Dates: start: 20220222, end: 20220317
  3. REVLIMID [Suspect]
     Active Substance: LENALIDOMIDE
     Route: 048
     Dates: start: 20220317
  4. LISINOPRIL [Concomitant]
     Active Substance: LISINOPRIL
     Route: 048
     Dates: start: 20220114
  5. METOPROLOL SUCCINATE [Concomitant]
     Active Substance: METOPROLOL SUCCINATE
     Route: 048
     Dates: start: 20220114
  6. DORZOLAMIDE HYDROCHLORIDE [Concomitant]
     Active Substance: DORZOLAMIDE HYDROCHLORIDE
     Route: 047
     Dates: start: 20220114
  7. PREDNISOLONE ACETATE [Concomitant]
     Active Substance: PREDNISOLONE ACETATE
     Route: 047
     Dates: start: 20220114
  8. SENNA LEAF [Concomitant]
     Active Substance: SENNA LEAF
     Dosage: 8.6-50 MG
     Route: 048
     Dates: start: 20220114
  9. BUPRENORPHINE [Concomitant]
     Active Substance: BUPRENORPHINE
     Dosage: 8.6-50 MG
     Route: 048
     Dates: start: 20220114
  10. PREGABALIN [Concomitant]
     Active Substance: PREGABALIN
     Dosage: 8.6-50 MG
     Route: 048
     Dates: start: 20220114
  11. MELOXICAM [Concomitant]
     Active Substance: MELOXICAM
     Dosage: 8.6-50 MG
     Route: 048
     Dates: start: 20220114
  12. COMBIGAN [Concomitant]
     Active Substance: BRIMONIDINE TARTRATE\TIMOLOL MALEATE
     Dosage: 8.6-50 MG
     Route: 048
     Dates: start: 20220114
  13. OMEPRAZOLE [Concomitant]
     Active Substance: OMEPRAZOLE
     Dosage: 8.6-50 MG
     Route: 048
     Dates: start: 20220114
  14. CLONAZEPAM [Concomitant]
     Active Substance: CLONAZEPAM
     Dosage: 8.6-50 MG
     Route: 048
     Dates: start: 20220114
  15. TRAZODONE [Concomitant]
     Active Substance: TRAZODONE HYDROCHLORIDE
     Dosage: 8.6-50 MG
     Route: 048
     Dates: start: 20220114
  16. DULOXETINE HYDROCHLORIDE [Concomitant]
     Active Substance: DULOXETINE HYDROCHLORIDE
     Dosage: 8.6-50 MG
     Route: 048
     Dates: start: 20220114
  17. IBUPROFEN [Concomitant]
     Active Substance: IBUPROFEN
     Dosage: 8.6-50 MG
     Route: 048
     Dates: start: 20220114
  18. AMLODIPINE [Concomitant]
     Active Substance: AMLODIPINE BESYLATE
     Dosage: 8.6-50 MG
     Route: 048
     Dates: start: 20220114
  19. AMLODIPINE [Concomitant]
     Active Substance: AMLODIPINE BESYLATE
     Route: 048
     Dates: start: 20220127
  20. ALLOPURINOL [Concomitant]
     Active Substance: ALLOPURINOL
     Route: 048
     Dates: start: 20220127
  21. ALLOPURINOL [Concomitant]
     Active Substance: ALLOPURINOL
     Route: 048
     Dates: start: 20220127

REACTIONS (1)
  - Neutropenia [Unknown]
